FAERS Safety Report 15057972 (Version 17)
Quarter: 2019Q3

REPORT INFORMATION
  Report Type: Spontaneous
  Country: CA (occurrence: CA)
  Receive Date: 20180625
  Receipt Date: 20190909
  Transmission Date: 20191004
  Serious: Yes (Other)
  Sender: FDA-Public Use
  Company Number: CA-ROCHE-2143314

PATIENT
  Age: 66 Year
  Sex: Female

DRUGS (19)
  1. MONTELUKAST [Concomitant]
     Active Substance: MONTELUKAST SODIUM
     Indication: PRODUCT USED FOR UNKNOWN INDICATION
     Dosage: 1 DF, QD
     Route: 048
     Dates: start: 20181210
  2. PREDNISONE. [Concomitant]
     Active Substance: PREDNISONE
     Indication: URTICARIA
     Dosage: 50 MG, UNK
     Route: 065
     Dates: start: 20181208
  3. CETIRIZINE [Concomitant]
     Active Substance: CETIRIZINE HYDROCHLORIDE
     Indication: CHRONIC SPONTANEOUS URTICARIA
     Dosage: 1 DF, BID
     Route: 048
     Dates: start: 20171023
  4. CICLOSPORIN [Suspect]
     Active Substance: CYCLOSPORINE
     Indication: URTICARIA
     Route: 065
     Dates: start: 20190529
  5. PREDNISONE. [Concomitant]
     Active Substance: PREDNISONE
     Indication: URTICARIA
     Dosage: 25 MG, UNK
     Route: 065
  6. PREDNISONE. [Concomitant]
     Active Substance: PREDNISONE
     Dosage: 10 MG, UNK
     Route: 065
  7. XOLAIR [Suspect]
     Active Substance: OMALIZUMAB
     Indication: CHRONIC SPONTANEOUS URTICARIA
     Route: 058
     Dates: start: 20180611
  8. PREDNISONE. [Concomitant]
     Active Substance: PREDNISONE
     Indication: GRANULOMA ANNULARE
     Route: 065
     Dates: start: 20171017, end: 20171022
  9. PREDNISONE. [Concomitant]
     Active Substance: PREDNISONE
     Dosage: 10 MG, UNK
     Route: 065
     Dates: start: 20181208
  10. XOLAIR [Interacting]
     Active Substance: OMALIZUMAB
     Route: 058
     Dates: start: 20180928
  11. VASOTEC [ENALAPRILAT] [Interacting]
     Active Substance: ENALAPRILAT
     Indication: PRODUCT USED FOR UNKNOWN INDICATION
     Route: 048
  12. DOXEPIN [Suspect]
     Active Substance: DOXEPIN
     Indication: URTICARIA
     Route: 065
  13. XOLAIR [Interacting]
     Active Substance: OMALIZUMAB
     Route: 058
     Dates: start: 20180904
  14. BOTOX [Suspect]
     Active Substance: ONABOTULINUMTOXINA
     Indication: DYSTONIA
     Route: 065
  15. HYDROCHLOROTHIAZID [Concomitant]
     Active Substance: HYDROCHLOROTHIAZIDE
     Indication: PRODUCT USED FOR UNKNOWN INDICATION
     Dosage: 25 MG, QD
     Route: 048
  16. XOLAIR [Interacting]
     Active Substance: OMALIZUMAB
     Route: 058
     Dates: start: 20180712
  17. XOLAIR [Interacting]
     Active Substance: OMALIZUMAB
     Route: 058
     Dates: start: 20181030
  18. XOLAIR [Interacting]
     Active Substance: OMALIZUMAB
     Route: 058
     Dates: start: 20181127
  19. ENALAPRIL/HCT [Concomitant]
     Indication: HYPERTENSION
     Dosage: 1 DF (5/12.5MG), QD
     Route: 048
     Dates: start: 1987

REACTIONS (35)
  - Abdominal pain [Unknown]
  - Dizziness [Unknown]
  - Erythema [Unknown]
  - Blood creatine phosphokinase increased [Unknown]
  - Granuloma annulare [Recovering/Resolving]
  - Feeling abnormal [Unknown]
  - Skin discolouration [Unknown]
  - Headache [Not Recovered/Not Resolved]
  - Rhinorrhoea [Unknown]
  - Hypoaesthesia [Unknown]
  - Sneezing [Recovered/Resolved]
  - Fatigue [Unknown]
  - Swelling [Unknown]
  - Diverticulitis [Recovered/Resolved]
  - Restlessness [Unknown]
  - Blood pressure increased [Unknown]
  - Drug ineffective [Unknown]
  - Rectal haemorrhage [Recovering/Resolving]
  - Feeling of despair [Unknown]
  - Sensitivity to weather change [Unknown]
  - Decreased appetite [Unknown]
  - Paraesthesia [Unknown]
  - Drug interaction [Unknown]
  - Angioedema [Recovering/Resolving]
  - Lower respiratory tract infection [Recovered/Resolved]
  - Pyrexia [Recovered/Resolved]
  - Hypersensitivity [Unknown]
  - Dystonia [Unknown]
  - Nasopharyngitis [Recovered/Resolved]
  - Malaise [Unknown]
  - Urticaria [Recovered/Resolved]
  - Influenza [Unknown]
  - Asthenia [Unknown]
  - Blood calcium increased [Recovered/Resolved]
  - C-reactive protein increased [Unknown]

NARRATIVE: CASE EVENT DATE: 20180611
